FAERS Safety Report 6526697-8 (Version None)
Quarter: 2010Q1

REPORT INFORMATION
  Report Type: 
  Country: None (occurrence: None)
  Receive Date: 20100105
  Receipt Date: 20091225
  Transmission Date: 20100710
  Serious: Yes (Life-Threatening, Hospitalization)
  Sender: FDA-Public Use
  Company Number: JP-AMGEN-US373295

PATIENT
  Sex: Female
  Weight: 58 kg

DRUGS (11)
  1. ENBREL [Suspect]
     Indication: RHEUMATOID ARTHRITIS
     Route: 058
     Dates: start: 20081019, end: 20090901
  2. METHOTREXATE [Suspect]
     Indication: RHEUMATOID ARTHRITIS
     Route: 048
     Dates: start: 20081001, end: 20090922
  3. TROXSIN [Concomitant]
     Indication: GASTRIC ULCER
     Route: 048
     Dates: end: 20090922
  4. SOLETON [Concomitant]
     Indication: RHEUMATOID ARTHRITIS
     Route: 048
     Dates: end: 20090922
  5. PREDNISOLONE [Concomitant]
     Indication: RHEUMATOID ARTHRITIS
     Route: 048
  6. LASIX [Concomitant]
     Indication: OEDEMA
     Route: 048
     Dates: end: 20090922
  7. ALLEGRA [Concomitant]
     Route: 048
     Dates: end: 20090922
  8. MEVALOTIN [Concomitant]
     Indication: HYPERLIPIDAEMIA
     Route: 048
     Dates: end: 20090922
  9. DILTIAZEM HYDROCHLORIDE [Concomitant]
     Indication: HYPERTENSION
     Route: 048
     Dates: end: 20090922
  10. RIMATIL [Concomitant]
     Indication: RHEUMATOID ARTHRITIS
     Route: 048
     Dates: end: 20090922
  11. CHLORPHENIRAMINE MALEATE [Concomitant]
     Dosage: UNSPECIFIED
     Route: 048
     Dates: end: 20090922

REACTIONS (1)
  - INTERSTITIAL LUNG DISEASE [None]
